FAERS Safety Report 20951568 (Version 1)
Quarter: 2022Q2

REPORT INFORMATION
  Report Type: Spontaneous
  Country: CN (occurrence: CN)
  Receive Date: 20220613
  Receipt Date: 20220613
  Transmission Date: 20220721
  Serious: Yes (Hospitalization)
  Sender: FDA-Public Use
  Company Number: CN-PFIZER INC-202200824576

PATIENT
  Age: 30 Year
  Sex: Female
  Weight: 55 kg

DRUGS (2)
  1. HEMABATE [Suspect]
     Active Substance: CARBOPROST TROMETHAMINE
     Indication: Postpartum haemorrhage
     Dosage: 250 MG, 1X/DAY
     Route: 030
     Dates: start: 20220603, end: 20220603
  2. HEMABATE [Suspect]
     Active Substance: CARBOPROST TROMETHAMINE
     Indication: Uterine hypotonus

REACTIONS (3)
  - Pyrexia [Recovered/Resolved]
  - Nausea [Recovered/Resolved]
  - Vomiting [Recovered/Resolved]

NARRATIVE: CASE EVENT DATE: 20220603
